FAERS Safety Report 21025388 (Version 1)
Quarter: 2022Q2

REPORT INFORMATION
  Report Type: Spontaneous
  Country: GB (occurrence: GB)
  Receive Date: 20220630
  Receipt Date: 20220630
  Transmission Date: 20220721
  Serious: Yes (Other)
  Sender: FDA-Public Use
  Company Number: None

PATIENT
  Age: 39 Year
  Sex: Female
  Weight: 75 kg

DRUGS (1)
  1. ENBREL [Suspect]
     Active Substance: ETANERCEPT
     Indication: Psoriatic arthropathy
     Dosage: 50MG ONCE A WEEK INJECTION
     Route: 065
     Dates: start: 20220108, end: 20220616

REACTIONS (5)
  - Panic attack [Recovering/Resolving]
  - Cardiac disorder [Unknown]
  - Feeling hot [Unknown]
  - Agitation [Unknown]
  - Tremor [Unknown]

NARRATIVE: CASE EVENT DATE: 20220604
